FAERS Safety Report 11569225 (Version 1)
Quarter: 2015Q3

REPORT INFORMATION
  Report Type: Spontaneous
  Country: US (occurrence: US)
  Receive Date: 20150929
  Receipt Date: 20150929
  Transmission Date: 20151125
  Serious: No
  Sender: FDA-Public Use
  Company Number: US-JNJFOC-20150901379

PATIENT
  Age: 74 Year
  Sex: Female
  Weight: 68.04 kg

DRUGS (5)
  1. ALL OTHER NON-THERAPEUTIC PRODUCTS [Concomitant]
     Active Substance: UNSPECIFIED INGREDIENT
     Indication: NUTRITIONAL SUPPLEMENTATION
     Route: 065
  2. PEPCID AC [Suspect]
     Active Substance: FAMOTIDINE
     Indication: REFLUX LARYNGITIS
     Route: 048
     Dates: end: 20150831
  3. PEPCID AC [Suspect]
     Active Substance: FAMOTIDINE
     Route: 048
  4. DOCUSATE SODIUM. [Concomitant]
     Active Substance: DOCUSATE SODIUM
     Indication: NUTRITIONAL SUPPLEMENTATION
     Dosage: 1-2 CAPLETS DAILY
     Route: 065
  5. PAIN MEDICATIONS (NOS) [Concomitant]
     Active Substance: UNSPECIFIED INGREDIENT
     Indication: ANALGESIC THERAPY
     Route: 065

REACTIONS (1)
  - Constipation [Not Recovered/Not Resolved]
